FAERS Safety Report 24452978 (Version 1)
Quarter: 2024Q4

REPORT INFORMATION
  Report Type: Spontaneous
  Country: US (occurrence: US)
  Receive Date: 20241017
  Receipt Date: 20241017
  Transmission Date: 20250115
  Serious: No
  Sender: SUNOVION
  Company Number: US-SMPA-202406-URV-000851AA

PATIENT
  Sex: Female

DRUGS (1)
  1. GEMTESA [Suspect]
     Active Substance: VIBEGRON
     Indication: Hypertonic bladder
     Dosage: 1 TAB, QD
     Route: 065

REACTIONS (5)
  - Peripheral swelling [Unknown]
  - Peripheral swelling [Unknown]
  - Abdominal rigidity [Unknown]
  - Headache [Unknown]
  - Nausea [Unknown]
